FAERS Safety Report 4846427-5 (Version None)
Quarter: 2005Q4

REPORT INFORMATION
  Report Type: 
  Country: None (occurrence: None)
  Receive Date: 20051128
  Receipt Date: 20050531
  Transmission Date: 20060501
  Serious: Yes (Other)
  Sender: FDA-Public Use
  Company Number: 2005BH000096

PATIENT
  Age: 54 Year
  Sex: Female

DRUGS (3)
  1. IMMUNE GLOBULIN INTRAVENOUS (HUMAN) [Suspect]
     Indication: IMMUNODEFICIENCY
     Dosage: 21 GM
  2. HEPARIN [Concomitant]
  3. WARFARIN SODIUM [Concomitant]

REACTIONS (8)
  - BRONCHIECTASIS [None]
  - CEREBRAL HAEMORRHAGE [None]
  - CHRONIC SINUSITIS [None]
  - EPILEPSY [None]
  - MARROW HYPERPLASIA [None]
  - SUPERIOR SAGITTAL SINUS THROMBOSIS [None]
  - THROMBOCYTHAEMIA [None]
  - TRANSVERSE SINUS THROMBOSIS [None]
